FAERS Safety Report 16725786 (Version 2)
Quarter: 2019Q3

REPORT INFORMATION
  Report Type: Spontaneous
  Country: US (occurrence: US)
  Receive Date: 20190821
  Receipt Date: 20190829
  Transmission Date: 20191005
  Serious: Yes (Hospitalization)
  Sender: FDA-Public Use
  Company Number: US-UNITED THERAPEUTICS-UNT-2019-013921

PATIENT
  Age: 68 Year
  Sex: Male
  Weight: 88.89 kg

DRUGS (2)
  1. AMLODIPINE [Concomitant]
     Active Substance: AMLODIPINE BESYLATE
     Indication: PRODUCT USED FOR UNKNOWN INDICATION
     Dosage: UNK
     Route: 065
  2. REMODULIN [Suspect]
     Active Substance: TREPROSTINIL
     Indication: PULMONARY ARTERIAL HYPERTENSION
     Dosage: 0.029 ?G/KG, CONTINUING
     Route: 041
     Dates: start: 20161005

REACTIONS (6)
  - Injection site extravasation [Unknown]
  - Device breakage [Unknown]
  - Burning sensation [Unknown]
  - Diarrhoea [Unknown]
  - Pulmonary arterial hypertension [Unknown]
  - Limb discomfort [Unknown]

NARRATIVE: CASE EVENT DATE: 20190816
